FAERS Safety Report 19094951 (Version 1)
Quarter: 2021Q2

REPORT INFORMATION
  Report Type: Spontaneous
  Country: CA (occurrence: CA)
  Receive Date: 20210405
  Receipt Date: 20210405
  Transmission Date: 20210717
  Serious: Yes (Other)
  Sender: FDA-Public Use
  Company Number: CA-JNJFOC-20210358510

PATIENT
  Age: 73 Year
  Sex: Male

DRUGS (3)
  1. BISOPROLOL [Concomitant]
     Active Substance: BISOPROLOL
  2. REMICADE [Suspect]
     Active Substance: INFLIXIMAB
     Indication: CROHN^S DISEASE
     Route: 042
  3. LASIX [Concomitant]
     Active Substance: FUROSEMIDE

REACTIONS (3)
  - Off label use [Unknown]
  - Gastrointestinal pain [Unknown]
  - Condition aggravated [Unknown]
